FAERS Safety Report 22206065 (Version 3)
Quarter: 2023Q2

REPORT INFORMATION
  Report Type: Report from Study
  Country: MX (occurrence: MX)
  Receive Date: 20230413
  Receipt Date: 20230504
  Transmission Date: 20230721
  Serious: Yes (Hospitalization)
  Sender: FDA-Public Use
  Company Number: MX-002147023-NVSC2023MX029457

PATIENT
  Age: 32 Year
  Sex: Male
  Weight: 79 kg

DRUGS (2)
  1. COSENTYX [Suspect]
     Active Substance: SECUKINUMAB
     Indication: Psoriasis
     Dosage: 300 MG, QW (2 X150 MG)
     Route: 058
     Dates: start: 20221208
  2. COSENTYX [Suspect]
     Active Substance: SECUKINUMAB
     Indication: Psoriatic arthropathy
     Dosage: 300 MG, QMO (2 X150 MG)
     Route: 058

REACTIONS (13)
  - Colitis [Recovered/Resolved]
  - Abdominal discomfort [Recovered/Resolved]
  - Abdominal distension [Recovered/Resolved]
  - Dyspepsia [Recovered/Resolved]
  - Malaise [Recovering/Resolving]
  - Oropharyngeal pain [Unknown]
  - Somnolence [Unknown]
  - Hypersensitivity [Unknown]
  - Incisional hernia [Recovered/Resolved]
  - Influenza like illness [Recovered/Resolved]
  - Productive cough [Recovered/Resolved]
  - Oropharyngeal discomfort [Recovered/Resolved]
  - Secretion discharge [Recovered/Resolved]

NARRATIVE: CASE EVENT DATE: 20230201
